FAERS Safety Report 15085168 (Version 1)
Quarter: 2018Q2

REPORT INFORMATION
  Report Type: Spontaneous
  Country: US (occurrence: US)
  Receive Date: 20180628
  Receipt Date: 20180628
  Transmission Date: 20180711
  Serious: No
  Sender: FDA-Public Use
  Company Number: US-GLAXOSMITHKLINE-US2018GSK110176

PATIENT
  Sex: Female

DRUGS (2)
  1. LAMICTAL [Suspect]
     Active Substance: LAMOTRIGINE
     Indication: PRODUCT USED FOR UNKNOWN INDICATION
     Dosage: 200 MG, U
     Dates: start: 1998
  2. LAMICTAL [Suspect]
     Active Substance: LAMOTRIGINE
     Dosage: 175 MG, QD

REACTIONS (5)
  - Muscular weakness [Unknown]
  - Rebound effect [Unknown]
  - Adverse event [Unknown]
  - Muscle twitching [Unknown]
  - Feeling abnormal [Unknown]
